FAERS Safety Report 25729572 (Version 1)
Quarter: 2025Q3

REPORT INFORMATION
  Report Type: Spontaneous
  Country: CA (occurrence: CA)
  Receive Date: 20250827
  Receipt Date: 20250827
  Transmission Date: 20251021
  Serious: Yes (Hospitalization, Other)
  Sender: UCB
  Company Number: CA-UCBSA-2025052540

PATIENT
  Sex: Male

DRUGS (1)
  1. LACOSAMIDE [Suspect]
     Active Substance: LACOSAMIDE
     Indication: Partial seizures
     Dosage: 100 MILLIGRAM, 2X/DAY (BID)

REACTIONS (4)
  - Seizure [Recovering/Resolving]
  - Lethargy [Recovering/Resolving]
  - Irritability [Recovering/Resolving]
  - Drug ineffective [Unknown]
